FAERS Safety Report 9800247 (Version 1)
Quarter: 2014Q1

REPORT INFORMATION
  Report Type: Spontaneous
  Country: GB (occurrence: GB)
  Receive Date: 20140106
  Receipt Date: 20140106
  Transmission Date: 20141002
  Serious: Yes (Other)
  Sender: FDA-Public Use
  Company Number: GB-GILEAD-2014-0091071

PATIENT
  Age: 66 Year
  Sex: Male

DRUGS (9)
  1. TRUVADA [Suspect]
     Indication: HIV INFECTION
     Dosage: 1 DF QD; START DATE IS AN ESTIMATE.
     Route: 048
     Dates: start: 2010, end: 20131211
  2. AMLODIPINE [Concomitant]
     Indication: HYPERTENSION
  3. LISINOPRIL [Concomitant]
     Indication: HYPERTENSION
  4. EFAVIRENZ [Concomitant]
     Indication: HIV INFECTION
     Dosage: 600 MG; DATE STARTED: OVER A YEAR AGO.
     Route: 048
  5. GLICLAZIDE [Concomitant]
     Indication: DIABETES MELLITUS
  6. METFORMIN [Concomitant]
     Indication: DIABETES MELLITUS
  7. SITAGLIPTIN [Concomitant]
     Indication: DIABETES MELLITUS
  8. ATORVASTATIN [Concomitant]
  9. ASPIRIN [Concomitant]
     Indication: ANTIPLATELET THERAPY

REACTIONS (1)
  - Renal tubular disorder [Not Recovered/Not Resolved]
